FAERS Safety Report 24802577 (Version 3)
Quarter: 2025Q3

REPORT INFORMATION
  Report Type: Report from Study
  Country: CA (occurrence: CA)
  Receive Date: 20250103
  Receipt Date: 20250715
  Transmission Date: 20251020
  Serious: Yes (Hospitalization, Other)
  Sender: CELLTRION
  Company Number: CA-CELLTRION INC.-2024CA029912

PATIENT

DRUGS (7)
  1. INFLIXIMAB-DYYB [Suspect]
     Active Substance: INFLIXIMAB-DYYB
     Indication: Crohn^s disease
     Dosage: 120 MG, WEEKLY
     Route: 058
     Dates: start: 20240125
  2. INFLIXIMAB-DYYB [Suspect]
     Active Substance: INFLIXIMAB-DYYB
     Dosage: 120 MG, Q2WEEKS
     Route: 058
     Dates: start: 20241114
  3. INFLIXIMAB-DYYB [Suspect]
     Active Substance: INFLIXIMAB-DYYB
     Dosage: 120 MG, WEEKLY
     Route: 058
     Dates: start: 20241212
  4. INFLIXIMAB-DYYB [Suspect]
     Active Substance: INFLIXIMAB-DYYB
     Dosage: 120 MG, 1 EVERY 2 WEEKS (DOSAGE FORM: KIT)
     Route: 058
     Dates: start: 20241114
  5. PANTOPRAZOLE SODIUM [Concomitant]
     Active Substance: PANTOPRAZOLE SODIUM
     Indication: Product used for unknown indication
     Route: 065
  6. VYVANSE [Concomitant]
     Active Substance: LISDEXAMFETAMINE DIMESYLATE
     Indication: Product used for unknown indication
     Route: 065
  7. PANTOPRAZOLE SODIUM [Concomitant]
     Active Substance: PANTOPRAZOLE SODIUM
     Indication: Product used for unknown indication
     Route: 065

REACTIONS (7)
  - Malaise [Recovered/Resolved]
  - Inflammation [Recovered/Resolved]
  - Intestinal obstruction [Recovered/Resolved]
  - Intentional dose omission [Recovered/Resolved]
  - Product storage error [Recovered/Resolved]
  - Intentional product use issue [Recovered/Resolved]
  - Off label use [Unknown]

NARRATIVE: CASE EVENT DATE: 20241101
